FAERS Safety Report 25973275 (Version 4)
Quarter: 2025Q4

REPORT INFORMATION
  Report Type: Report from Study
  Country: US (occurrence: US)
  Receive Date: 20251029
  Receipt Date: 20251218
  Transmission Date: 20260118
  Serious: Yes (Life-Threatening, Hospitalization, Other)
  Sender: TAKEDA
  Company Number: US-TAKEDA-2025TUS094776

PATIENT
  Age: 64 Year
  Sex: Female

DRUGS (2)
  1. PONATINIB [Suspect]
     Active Substance: PONATINIB
     Indication: Acute lymphocytic leukaemia
     Dosage: 30 MILLIGRAM, QD
  2. AMLODIPINE BESYLATE [Concomitant]
     Active Substance: AMLODIPINE BESYLATE
     Dosage: UNK

REACTIONS (8)
  - Liver disorder [Unknown]
  - Bone pain [Unknown]
  - Hepatic enzyme increased [Unknown]
  - Blood pressure increased [Unknown]
  - Flushing [Unknown]
  - Abdominal pain upper [Unknown]
  - Barrett^s oesophagus [Recovering/Resolving]
  - Pain in extremity [Recovered/Resolved]
